FAERS Safety Report 16470625 (Version 1)
Quarter: 2019Q2

REPORT INFORMATION
  Report Type: Spontaneous
  Country: JP (occurrence: JP)
  Receive Date: 20190624
  Receipt Date: 20190624
  Transmission Date: 20190711
  Serious: Yes (Life-Threatening, Other)
  Sender: FDA-Public Use
  Company Number: JP-GE HEALTHCARE LIFE SCIENCES-2019CSU001520

PATIENT

DRUGS (9)
  1. OMNIPAQUE [Suspect]
     Active Substance: IOHEXOL
     Indication: COMPUTERISED TOMOGRAM
     Dosage: 147 ML, SINGLE
     Route: 040
     Dates: start: 20190311, end: 20190311
  2. BICALUTAMIDE OD [Concomitant]
     Indication: PROSTATIC SPECIFIC ANTIGEN INCREASED
     Dosage: 80 MG, QD
     Route: 048
     Dates: start: 20131115, end: 20140206
  3. PREDONINE [Concomitant]
     Active Substance: PREDNISOLONE
     Dosage: 5 MG, QD
     Route: 048
  4. ODYNE [Concomitant]
     Active Substance: FLUTAMIDE
     Indication: BONE DISORDER
     Dosage: 125 MG, TID
     Route: 048
     Dates: start: 20140421, end: 20150529
  5. INSULIN [Concomitant]
     Active Substance: INSULIN NOS
     Dosage: UNK
     Route: 050
  6. FAMOTIDINE. [Concomitant]
     Active Substance: FAMOTIDINE
     Dosage: 10 MG, QD
     Route: 048
  7. PROSEXOL [Concomitant]
     Active Substance: ETHINYL ESTRADIOL
     Dosage: 1.5 MG, TID
     Route: 048
  8. ZOMETA [Concomitant]
     Active Substance: ZOLEDRONIC ACID
     Dosage: 4 MG, QD
     Route: 042
     Dates: start: 20140323
  9. OMNIPAQUE [Suspect]
     Active Substance: IOHEXOL
     Indication: PROSTATE CANCER

REACTIONS (1)
  - Ventricular fibrillation [Recovered/Resolved]

NARRATIVE: CASE EVENT DATE: 20190311
